FAERS Safety Report 6829665-1 (Version None)
Quarter: 2010Q3

REPORT INFORMATION
  Report Type: 
  Country: None (occurrence: None)
  Receive Date: 20100709
  Receipt Date: 20070426
  Transmission Date: 20110219
  Serious: No
  Sender: FDA-Public Use
  Company Number: US-PFIZER INC-2007014387

PATIENT
  Sex: Female
  Weight: 59.87 kg

DRUGS (7)
  1. CHANTIX [Suspect]
     Indication: SMOKING CESSATION THERAPY
     Dates: start: 20070208
  2. SYNTHROID [Concomitant]
  3. AMITRIPTYLINE W/PERPHENAZINE [Concomitant]
  4. FEMARA [Concomitant]
  5. MULTI-VITAMINS [Concomitant]
  6. FISH OIL [Concomitant]
  7. CALCIUM CARBONATE [Concomitant]

REACTIONS (5)
  - DRUG INEFFECTIVE [None]
  - GLOSSODYNIA [None]
  - PRE-EXISTING CONDITION IMPROVED [None]
  - STOMATITIS [None]
  - TOBACCO USER [None]
